FAERS Safety Report 7567227-1 (Version None)
Quarter: 2011Q2

REPORT INFORMATION
  Report Type: 
  Country: None (occurrence: None)
  Receive Date: 20110616
  Receipt Date: 20110604
  Transmission Date: 20111010
  Serious: Yes (Other)
  Sender: FDA-Public Use
  Company Number: VAL_00579_2011

PATIENT
  Age: 35 Year
  Sex: Male
  Weight: 69.5 kg

DRUGS (2)
  1. ROCALTROL [Suspect]
     Indication: BLOOD PARATHYROID HORMONE INCREASED
     Dosage: ORAL; 2.5 ?G 2X/WEEK ORAL
     Route: 048
     Dates: start: 20060101
  2. ROCALTROL [Suspect]
     Indication: BLOOD PARATHYROID HORMONE INCREASED
     Dosage: ORAL; 2.5 ?G 2X/WEEK ORAL
     Route: 048
     Dates: start: 20100701

REACTIONS (3)
  - DRUG INEFFECTIVE [None]
  - PRODUCT COUNTERFEIT [None]
  - BLOOD PARATHYROID HORMONE ABNORMAL [None]
